FAERS Safety Report 9004666 (Version 1)
Quarter: 2012Q4

REPORT INFORMATION
  Report Type: Spontaneous
  Country: GB (occurrence: None)
  Receive Date: 20121227
  Receipt Date: 20121227
  Transmission Date: 20130627
  Serious: Yes (Other)
  Sender: FDA-Public Use
  Company Number: AUR-APL-2012-05500

PATIENT
  Age: 53 Year
  Sex: Female
  Weight: 70 kg

DRUGS (19)
  1. SIMVASTATIN (SIMVASTATIN) [Suspect]
     Indication: DRUG USE FOR UNKNOWN INDICATION
     Dates: start: 20121207
  2. ANUSOL (ANUSOL /00117301/ [Concomitant]
  3. ATORVASTATIN (ATORVASTATIN) [Concomitant]
  4. BECONASE (BECLOMETASONE DIPROPIONATE) [Concomitant]
  5. BELLADONNA (ATROPA BELLADONNA EXTRACT) [Concomitant]
  6. BENDROFLUMETHIAZIDE (BENDROFLUMETHIAZIDE) [Concomitant]
  7. ALCEOS (LEKOVIT CA) [Concomitant]
  8. GAVISCON ADVANCE (GAVISCON ADVANCE) [Concomitant]
  9. GLYCERYL TRINITRATE (GLYCERYL TRINITRATE) [Concomitant]
  10. LANSOPRAZOLE (LANSOPRAZOLE) [Concomitant]
  11. LORATADINE (LORATADINE) [Concomitant]
  12. LOSARTAN (LOSARTAN) [Concomitant]
  13. MEBEVERINE HYDROCHLORIDE (MEBEVERINE HYDROCHLORIDE) [Concomitant]
  14. METFORMIN (METFORMIN) [Concomitant]
  15. PARACETAMOL (PARACETAMOL) [Concomitant]
  16. PIROXICAM (PIROXICAM) [Concomitant]
  17. PROCHLORPERAZINE (PROCHLORPERAZINE) [Concomitant]
  18. SITAGLIPTIN (SITAGLIPTIN) [Concomitant]
  19. TRAMADOL (TRAMADOL) [Concomitant]

REACTIONS (2)
  - Pruritus [None]
  - Rash [None]
